FAERS Safety Report 24914064 (Version 1)
Quarter: 2025Q1

REPORT INFORMATION
  Report Type: Spontaneous
  Country: IR (occurrence: IR)
  Receive Date: 20250202
  Receipt Date: 20250202
  Transmission Date: 20250409
  Serious: Yes (Hospitalization)
  Sender: PRINSTON PHARMACEUTICAL
  Company Number: IR-PRINSTON PHARMACEUTICAL INC.-2025PRN00024

PATIENT
  Age: 47 Year
  Sex: Male

DRUGS (6)
  1. CLOPIDOGREL [Suspect]
     Active Substance: CLOPIDOGREL BISULFATE
  2. CLOPIDOGREL [Suspect]
     Active Substance: CLOPIDOGREL BISULFATE
     Dosage: 75 MG, 1X/DAY
  3. ASPIRIN [Concomitant]
     Active Substance: ASPIRIN
     Dosage: 81 MG, 1X/DAY
  4. ATORVASTATIN [Concomitant]
     Active Substance: ATORVASTATIN
     Dosage: 80 MG, 1X/DAY
  5. METOPROLOL SUCCINATE [Concomitant]
     Active Substance: METOPROLOL SUCCINATE
     Dosage: 25 MG, 2X/DAY
  6. AMLODIPINE\VALSARTAN [Concomitant]
     Active Substance: AMLODIPINE\VALSARTAN

REACTIONS (1)
  - Polyarthritis [Recovered/Resolved]
